FAERS Safety Report 8533764-6 (Version None)
Quarter: 2012Q3

REPORT INFORMATION
  Report Type: 
  Country: None (occurrence: None)
  Receive Date: 20120724
  Receipt Date: 20120710
  Transmission Date: 20120928
  Serious: Yes (Other)
  Sender: FDA-Public Use
  Company Number: DE-MYLANLABS-2012S1014188

PATIENT
  Age: 20 Year
  Sex: Female
  Weight: 57 kg

DRUGS (2)
  1. FOLIC ACID [Concomitant]
     Indication: PROPHYLAXIS OF NEURAL TUBE DEFECT
     Dosage: 0.8 [MG/D ]
     Route: 048
  2. FLUOXETINE HCL [Suspect]
     Indication: DEPRESSION
     Dosage: 40 [MG/D ]
     Route: 048
     Dates: start: 20100523

REACTIONS (3)
  - URINARY TRACT INFECTION [None]
  - INFLUENZA LIKE ILLNESS [None]
  - MATERNAL EXPOSURE DURING PREGNANCY [None]
